FAERS Safety Report 10264745 (Version 2)
Quarter: 2014Q3

REPORT INFORMATION
  Report Type: Spontaneous
  Country: JP (occurrence: JP)
  Receive Date: 20140627
  Receipt Date: 20140923
  Transmission Date: 20150326
  Serious: Yes (Life-Threatening, Hospitalization, Other)
  Sender: FDA-Public Use
  Company Number: JP-SHIRE-JP201403160

PATIENT
  Age: 51 Year
  Sex: Male

DRUGS (7)
  1. FOSRENOL [Suspect]
     Active Substance: LANTHANUM CARBONATE
     Indication: HYPERPHOSPHATAEMIA
     Dosage: 1500 MG, UNKNOWN
     Route: 048
     Dates: end: 20130108
  2. NORVASC [Concomitant]
     Active Substance: AMLODIPINE BESYLATE
     Indication: HYPERTENSION
     Dosage: 3 DF, UNKNOWN
     Route: 048
     Dates: end: 20130108
  3. CARDENALIN [Concomitant]
     Active Substance: DOXAZOSIN MESYLATE
     Indication: HYPERTENSION
     Dosage: 2 DF, UNKNOWN
     Route: 048
     Dates: end: 20130108
  4. MICARDIS [Concomitant]
     Active Substance: TELMISARTAN
     Indication: HYPERTENSION
     Dosage: 1 DF, UNKNOWN
     Route: 048
     Dates: end: 20130108
  5. PLAVIX [Concomitant]
     Active Substance: CLOPIDOGREL BISULFATE
     Indication: ANGINA PECTORIS
     Dosage: 2 DF, UNKNOWN
     Route: 048
     Dates: end: 20130108
  6. PRECIPITATED CALCIUM CARBONATE [Concomitant]
     Active Substance: CALCIUM CARBONATE
     Indication: HYPERPHOSPHATAEMIA
     Dosage: 6 DF, UNKNOWN
     Route: 048
     Dates: end: 20130108
  7. TAKEPRON [Concomitant]
     Active Substance: LANSOPRAZOLE
     Indication: GASTRITIS
     Dosage: 2 DF, UNKNOWN
     Route: 048
     Dates: end: 20130108

REACTIONS (3)
  - Enterocolitis bacterial [Unknown]
  - Faeces hard [Unknown]
  - Rectal perforation [Recovered/Resolved]

NARRATIVE: CASE EVENT DATE: 20130109
